FAERS Safety Report 5342535-3 (Version None)
Quarter: 2007Q2

REPORT INFORMATION
  Report Type: 
  Country: None (occurrence: None)
  Receive Date: 20070601
  Receipt Date: 20070417
  Transmission Date: 20071010
  Serious: Yes (Other)
  Sender: FDA-Public Use
  Company Number: US-PFIZER INC-2007031138

PATIENT
  Sex: Female
  Weight: 47.6 kg

DRUGS (6)
  1. DILANTIN [Suspect]
  2. CHANTIX [Suspect]
     Indication: SMOKING CESSATION THERAPY
     Dates: start: 20070408
  3. TEGRETOL [Concomitant]
  4. LIPITOR [Concomitant]
  5. NEXIUM [Concomitant]
  6. ADVAIR DISKUS 100/50 [Concomitant]

REACTIONS (4)
  - ABNORMAL DREAMS [None]
  - BRAIN NEOPLASM [None]
  - DEPRESSION [None]
  - SOMNOLENCE [None]
